FAERS Safety Report 6070643-0 (Version None)
Quarter: 2009Q1

REPORT INFORMATION
  Report Type: 
  Country: None (occurrence: None)
  Receive Date: 20090209
  Receipt Date: 20090203
  Transmission Date: 20090719
  Serious: Yes (Other)
  Sender: FDA-Public Use
  Company Number: US-PFIZER INC-2008084153

PATIENT
  Sex: Female

DRUGS (2)
  1. XALATAN [Suspect]
     Indication: GLAUCOMA
     Dosage: UNK DF, 1X/DAY
     Route: 047
     Dates: start: 20040101
  2. XALATAN [Suspect]
     Dates: start: 20040101

REACTIONS (7)
  - CATARACT OPERATION [None]
  - COUGH [None]
  - MALAISE [None]
  - NASOPHARYNGITIS [None]
  - NERVOUSNESS [None]
  - PRODUCT TAMPERING [None]
  - STRESS [None]
